FAERS Safety Report 18362388 (Version 5)
Quarter: 2020Q4

REPORT INFORMATION
  Report Type: Spontaneous
  Country: CA (occurrence: CA)
  Receive Date: 20201009
  Receipt Date: 20201128
  Transmission Date: 20210114
  Serious: Yes (Hospitalization, Other)
  Sender: FDA-Public Use
  Company Number: CA-CELLTRION INC.-2018CA022349

PATIENT

DRUGS (15)
  1. INFLECTRA [Suspect]
     Active Substance: INFLIXIMAB-DYYB
     Dosage: 400 MG, EVERY 6 WEEKS
     Route: 042
     Dates: start: 20200630
  2. INFLECTRA [Suspect]
     Active Substance: INFLIXIMAB-DYYB
     Dosage: 400 MG, EVERY 6 WEEKS
     Route: 042
     Dates: start: 20200810
  3. COLCHICINE. [Concomitant]
     Active Substance: COLCHICINE
     Dosage: 0.06 MG, 1X/DAY PER PATIENT; 0.6 MG 1X/DAY PER MD
     Route: 065
  4. DIMENHYDRINATE. [Concomitant]
     Active Substance: DIMENHYDRINATE
     Dosage: 50 UNK
     Route: 042
     Dates: start: 20201119, end: 20201119
  5. DOMPERIDONE [Concomitant]
     Active Substance: DOMPERIDONE
     Dosage: 10-20 MG QID AS NEEDED
  6. GRAVOL [Concomitant]
     Active Substance: DIMENHYDRINATE
     Dosage: 50 MG, AS NEEDED
  7. DIPHENHYDRAMINE. [Concomitant]
     Active Substance: DIPHENHYDRAMINE
     Indication: PREMEDICATION
     Dosage: 50 MG
     Route: 042
     Dates: start: 20200810, end: 20200810
  8. INFLECTRA [Suspect]
     Active Substance: INFLIXIMAB-DYYB
     Dosage: 400 MG, EVERY 6 WEEKS
     Route: 042
     Dates: start: 20201007
  9. INFLECTRA [Suspect]
     Active Substance: INFLIXIMAB-DYYB
     Indication: BEHCET^S SYNDROME
     Dosage: 400 MG, EVERY 6 WEEKS
     Route: 042
     Dates: start: 20180829
  10. PARIET [Concomitant]
     Active Substance: RABEPRAZOLE SODIUM
     Dosage: 20 MG, 2X/DAY
     Route: 048
  11. DIPHENHYDRAMINE. [Concomitant]
     Active Substance: DIPHENHYDRAMINE
     Dosage: 50 UNK
     Route: 042
     Dates: start: 20201119, end: 20201119
  12. DIMENHYDRINATE. [Concomitant]
     Active Substance: DIMENHYDRINATE
     Indication: PREMEDICATION
     Dosage: 50 MG
     Route: 042
     Dates: start: 20200810, end: 20200810
  13. INFLECTRA [Suspect]
     Active Substance: INFLIXIMAB-DYYB
     Dosage: 400 MG, EVERY 6 WEEKS
     Route: 042
     Dates: start: 20201119
  14. IMURAN [Concomitant]
     Active Substance: AZATHIOPRINE
     Dosage: 150 MG, 1X/DAY
     Dates: start: 2012
  15. MORPHINE [Concomitant]
     Active Substance: MORPHINE
     Dosage: 30 MG, AS NEEDED (4X/DAY AS NEEDED (ON AND OFF))
     Route: 065
     Dates: start: 2012

REACTIONS (8)
  - Poor venous access [Unknown]
  - Inappropriate schedule of product administration [Unknown]
  - Vascular device infection [Unknown]
  - Body temperature decreased [Unknown]
  - Off label use [Unknown]
  - Product use in unapproved indication [Unknown]
  - Blood pressure diastolic decreased [Recovered/Resolved]
  - Oral disorder [Unknown]

NARRATIVE: CASE EVENT DATE: 20180829
